FAERS Safety Report 16460638 (Version 1)
Quarter: 2019Q2

REPORT INFORMATION
  Report Type: Spontaneous
  Country: US (occurrence: US)
  Receive Date: 20190620
  Receipt Date: 20190620
  Transmission Date: 20190711
  Serious: No
  Sender: FDA-Public Use
  Company Number: US-SA-2019SA166937

PATIENT
  Age: 33 Year
  Sex: Female

DRUGS (3)
  1. OLOPATADINE. [Concomitant]
     Active Substance: OLOPATADINE
  2. AMPHETAMINE [Concomitant]
     Active Substance: AMPHETAMINE
  3. DUPIXENT [Suspect]
     Active Substance: DUPILUMAB
     Indication: ECZEMA
     Dosage: 300 MG, QOW
     Route: 058
     Dates: start: 20180220

REACTIONS (2)
  - Product dose omission [Unknown]
  - Dermatitis [Not Recovered/Not Resolved]

NARRATIVE: CASE EVENT DATE: 201905
